FAERS Safety Report 17985265 (Version 1)
Quarter: 2020Q3

REPORT INFORMATION
  Report Type: Report from Study
  Country: CA (occurrence: CA)
  Receive Date: 20200706
  Receipt Date: 20200706
  Transmission Date: 20201103
  Serious: Yes (Other)
  Sender: FDA-Public Use
  Company Number: CA-JNJFOC-20200633346

PATIENT
  Age: 18 Year
  Sex: Female
  Weight: 57.8 kg

DRUGS (1)
  1. REMICADE [Suspect]
     Active Substance: INFLIXIMAB
     Indication: JUVENILE IDIOPATHIC ARTHRITIS
     Route: 042

REACTIONS (6)
  - Oropharyngeal pain [Recovered/Resolved]
  - Incorrect drug administration rate [Unknown]
  - Pruritus [Recovered/Resolved]
  - Off label use [Unknown]
  - Nasal congestion [Recovered/Resolved]
  - Infusion related reaction [Recovered/Resolved]

NARRATIVE: CASE EVENT DATE: 20200623
